FAERS Safety Report 17740078 (Version 1)
Quarter: 2020Q2

REPORT INFORMATION
  Report Type: Spontaneous
  Country: BR (occurrence: BR)
  Receive Date: 20200504
  Receipt Date: 20200504
  Transmission Date: 20200714
  Serious: Yes (Other)
  Sender: FDA-Public Use
  Company Number: BR-BAXTER-2020BAX009289

PATIENT
  Age: 55 Year
  Sex: Female
  Weight: 57 kg

DRUGS (12)
  1. SERUM PHYSIOLOGICAL [Suspect]
     Active Substance: SODIUM CHLORIDE
     Indication: MEDICATION DILUTION
     Dosage: AC PROTOCOL, FIRST CYCLE, GENUXAL + 0.9% PHYSIOLOGICAL SERUM
     Route: 042
  2. DOXIL [Suspect]
     Active Substance: DOXORUBICIN HYDROCHLORIDE
     Dosage: AC PROTOCOL, SECOND CYCLE, DOXORUBICIN 60 MG/M2 + 5% GLUCOSE 50 ML, INFUSION TIME 15 MIN
     Route: 042
     Dates: start: 20200415, end: 20200415
  3. SERUM PHYSIOLOGICAL [Suspect]
     Active Substance: SODIUM CHLORIDE
     Dosage: AC PROTOCOL, SECOND CYCLE, GENUXAL 600 MG/M2 + 0.9% PHYSIOLOGICAL SERUM 250 ML, INFUSION TIME 30 MIN
     Route: 042
     Dates: start: 20200415, end: 20200415
  4. DEXAMETHASONE. [Concomitant]
     Active Substance: DEXAMETHASONE
     Indication: PREMEDICATION
     Route: 042
  5. GENUXAL [Suspect]
     Active Substance: CYCLOPHOSPHAMIDE
     Indication: BREAST CANCER
     Dosage: AC PROTOCOL, FIRST CYCLE, GENUXAL + 0.9% PHYSIOLOGICAL SERUM
     Route: 042
  6. GENUXAL [Suspect]
     Active Substance: CYCLOPHOSPHAMIDE
     Dosage: AC PROTOCOL, SECOND CYCLE, GENUXAL 600 MG/M2 + 0.9% PHYSIOLOGICAL SERUM 250 ML, INFUSION TIME 30 MIN
     Route: 042
     Dates: start: 20200415, end: 20200415
  7. GLUCOSE [Suspect]
     Active Substance: DEXTROSE
     Indication: MEDICATION DILUTION
     Dosage: AC PROTOCOL, FIRST CYCLE, DOXORUBICIN + 5% GLUCOSE
     Route: 042
  8. FOSAPREPITANT [Concomitant]
     Active Substance: FOSAPREPITANT
     Indication: PREMEDICATION
     Route: 042
  9. DOXIL [Suspect]
     Active Substance: DOXORUBICIN HYDROCHLORIDE
     Indication: BREAST CANCER
     Dosage: AC PROTOCOL, FIRST CYCLE, DOXORUBICIN + 5% GLUCOSE
     Route: 042
  10. PALONOSETRON. [Concomitant]
     Active Substance: PALONOSETRON HYDROCHLORIDE
     Indication: PREMEDICATION
     Route: 042
  11. LONQUEX [Suspect]
     Active Substance: LIPEGFILGRASTIM
     Indication: PRODUCT USED FOR UNKNOWN INDICATION
     Route: 065
     Dates: start: 20200416
  12. GLUCOSE [Suspect]
     Active Substance: DEXTROSE
     Dosage: AC PROTOCOL, SECOND CYCLE, DOXORUBICIN 60 MG/M2 + 5% GLUCOSE 50 ML, INFUSION TIME 15 MIN
     Route: 042
     Dates: start: 20200415, end: 20200415

REACTIONS (2)
  - Febrile neutropenia [Unknown]
  - Leukopenia [Unknown]

NARRATIVE: CASE EVENT DATE: 20200423
